FAERS Safety Report 18241522 (Version 1)
Quarter: 2020Q3

REPORT INFORMATION
  Report Type: Spontaneous
  Country: IN (occurrence: IN)
  Receive Date: 20200908
  Receipt Date: 20200908
  Transmission Date: 20201103
  Serious: No
  Sender: FDA-Public Use
  Company Number: IN-LUPIN LIMITED-2019-08200

PATIENT
  Age: 26 Year
  Sex: Male

DRUGS (4)
  1. OMEGA GOLD [Concomitant]
     Indication: PRODUCT USED FOR UNKNOWN INDICATION
     Dosage: 2 DOSAGE FORM, BID
     Route: 048
     Dates: start: 20191206
  2. PROTERA D [Concomitant]
     Indication: ACID PEPTIC DISEASE
     Dosage: 1 DOSAGE FORM, QD
     Route: 048
     Dates: start: 20191206
  3. SIGNOFLAM [Concomitant]
     Indication: PAIN
     Dosage: 1 DOSAGE FORM, BID
     Route: 048
     Dates: start: 20191206
  4. CETIL TABS 500 MG (CEFUROXIME AXETIL) [Suspect]
     Active Substance: CEFUROXIME AXETIL
     Indication: PERIPHERAL SWELLING
     Dosage: 1 DOSAGE FORM, BID
     Route: 048
     Dates: start: 20191207

REACTIONS (2)
  - Somnolence [Not Recovered/Not Resolved]
  - Dizziness [Not Recovered/Not Resolved]

NARRATIVE: CASE EVENT DATE: 20191207
